FAERS Safety Report 25943146 (Version 1)
Quarter: 2025Q4

REPORT INFORMATION
  Report Type: Spontaneous
  Country: US (occurrence: None)
  Receive Date: 20251020
  Receipt Date: 20251020
  Transmission Date: 20260118
  Serious: Yes (Other)
  Sender: FDA-CTU
  Company Number: None

PATIENT
  Sex: Male

DRUGS (12)
  1. LENALIDOMIDE [Suspect]
     Active Substance: LENALIDOMIDE
     Indication: Plasma cell myeloma
     Dosage: FREQUENCY : DAILY;  ON DAYS 1-21 FOLLOWED BY 7 DAYS OFF?
     Route: 048
     Dates: start: 20241022
  2. ACYCLOVIR [Concomitant]
     Active Substance: ACYCLOVIR
  3. ALPHA LIPOIC POW ACID [Concomitant]
  4. ASPIRIN [Concomitant]
     Active Substance: ASPIRIN
  5. ATORVASTATIN [Concomitant]
     Active Substance: ATORVASTATIN
  6. CALCIPOTRIEN CRE 0.005% [Concomitant]
  7. CETIRIZINE HCL [Concomitant]
     Active Substance: CETIRIZINE HYDROCHLORIDE
  8. COQ10 CAP 200MG [Concomitant]
  9. FLUOROURACIL [Concomitant]
     Active Substance: FLUOROURACIL
  10. FLUTICASONE [Concomitant]
     Active Substance: FLUTICASONE
  11. FLUTICASONE [Concomitant]
     Active Substance: FLUTICASONE
  12. HAVRIX INJ 1440UNIT [Concomitant]

REACTIONS (1)
  - Basal cell carcinoma [None]
